FAERS Safety Report 12231198 (Version 3)
Quarter: 2016Q2

REPORT INFORMATION
  Report Type: Report from Study
  Country: DE (occurrence: DE)
  Receive Date: 20160401
  Receipt Date: 20160510
  Transmission Date: 20160815
  Serious: Yes (Death, Hospitalization, Other)
  Sender: FDA-Public Use
  Company Number: DE-BRISTOL-MYERS SQUIBB COMPANY-BMS-2016-023313

PATIENT
  Age: 77 Year
  Sex: Female
  Weight: 55 kg

DRUGS (1)
  1. APIXABAN [Suspect]
     Active Substance: APIXABAN
     Indication: CEREBROVASCULAR ACCIDENT PROPHYLAXIS
     Dosage: 5 MG, BID
     Route: 048
     Dates: start: 20130724, end: 20150923

REACTIONS (7)
  - Sepsis [Fatal]
  - Acute coronary syndrome [Unknown]
  - Angina pectoris [Fatal]
  - Cardiac failure [Unknown]
  - Haemorrhage [Unknown]
  - Traumatic haematoma [Unknown]
  - Laceration [Unknown]

NARRATIVE: CASE EVENT DATE: 20150813
